FAERS Safety Report 4579219-5 (Version None)
Quarter: 2005Q1

REPORT INFORMATION
  Report Type: 
  Country: None (occurrence: None)
  Receive Date: 20050208
  Receipt Date: 20050208
  Transmission Date: 20050727
  Serious: No
  Sender: FDA-Public Use
  Company Number: None

PATIENT
  Age: 45 Year
  Sex: Male
  Weight: 105.9149 kg

DRUGS (2)
  1. FUROSEMIDE [Suspect]
     Indication: CELLULITIS
     Dosage: 80 MG DAILY
  2. FUROSEMIDE [Suspect]
     Indication: SKIN ULCER
     Dosage: 80 MG DAILY

REACTIONS (2)
  - DRUG INEFFECTIVE [None]
  - PHARMACEUTICAL PRODUCT COMPLAINT [None]
